FAERS Safety Report 12684650 (Version 1)
Quarter: 2016Q3

REPORT INFORMATION
  Report Type: Spontaneous
  Country: US (occurrence: US)
  Receive Date: 20160825
  Receipt Date: 20160825
  Transmission Date: 20161109
  Serious: No
  Sender: FDA-Public Use
  Company Number: US-GLAXOSMITHKLINE-US2016121929

PATIENT
  Age: 81 Year
  Sex: Male

DRUGS (1)
  1. ABREVA [Suspect]
     Active Substance: DOCOSANOL
     Indication: LIP SWELLING
     Dosage: UNK
     Dates: start: 20160819

REACTIONS (5)
  - Lip disorder [Not Recovered/Not Resolved]
  - Lip blister [Not Recovered/Not Resolved]
  - Oral discomfort [Not Recovered/Not Resolved]
  - Off label use [Unknown]
  - Chapped lips [Not Recovered/Not Resolved]

NARRATIVE: CASE EVENT DATE: 20160821
